FAERS Safety Report 15675022 (Version 1)
Quarter: 2018Q4

REPORT INFORMATION
  Report Type: Report from Study
  Country: IT (occurrence: IT)
  Receive Date: 20181130
  Receipt Date: 20181130
  Transmission Date: 20190205
  Serious: Yes (Other)
  Sender: FDA-Public Use
  Company Number: IT-ROCHE-2222799

PATIENT
  Age: 40 Year
  Sex: Female

DRUGS (2)
  1. TRITTICO [Suspect]
     Active Substance: TRAZODONE HYDROCHLORIDE
     Indication: DRUG ABUSE
     Dosage: UNIT DOSE: 60 [DRP]?STRENGTH: 25 MG/ML
     Route: 048
     Dates: start: 20181018, end: 20181018
  2. RIVOTRIL [Suspect]
     Active Substance: CLONAZEPAM
     Indication: DRUG ABUSE
     Dosage: UNIT DOSE: 69 [DRP]??2,5 MG/ML
     Route: 048
     Dates: start: 20181018, end: 20181018

REACTIONS (3)
  - Bradyphrenia [Recovered/Resolved]
  - Drug abuse [Unknown]
  - Dysarthria [Recovered/Resolved]

NARRATIVE: CASE EVENT DATE: 20181018
